FAERS Safety Report 8014296-0 (Version None)
Quarter: 2011Q4

REPORT INFORMATION
  Report Type: 
  Country: None (occurrence: None)
  Receive Date: 20111229
  Receipt Date: 20111215
  Transmission Date: 20120403
  Serious: Yes (Other)
  Sender: FDA-Public Use
  Company Number: ES-GLAXOSMITHKLINE-B0772133A

PATIENT
  Age: 56 Year
  Sex: Female

DRUGS (2)
  1. MALARONE [Suspect]
     Indication: MALARIA PROPHYLAXIS
     Route: 048
     Dates: start: 20110803, end: 20110809
  2. EZETIMIBE [Concomitant]

REACTIONS (3)
  - SOMNOLENCE [None]
  - DIPLOPIA [None]
  - COORDINATION ABNORMAL [None]
